FAERS Safety Report 7283370-9 (Version None)
Quarter: 2011Q1

REPORT INFORMATION
  Report Type: 
  Country: None (occurrence: None)
  Receive Date: 20110209
  Receipt Date: 20100628
  Transmission Date: 20110831
  Serious: No
  Sender: FDA-Public Use
  Company Number: A0867416A

PATIENT
  Sex: Female

DRUGS (5)
  1. XANAX [Concomitant]
  2. PAXIL [Suspect]
     Indication: DEPRESSION
     Dosage: 60MG PER DAY
     Route: 048
  3. HERBAL SUPPLEMENTS [Concomitant]
  4. CLONAZEPAM [Concomitant]
  5. DIABETES MEDICATION [Concomitant]

REACTIONS (3)
  - NAUSEA [None]
  - DRY MOUTH [None]
  - WEIGHT INCREASED [None]
